FAERS Safety Report 15794647 (Version 2)
Quarter: 2019Q1

REPORT INFORMATION
  Report Type: Spontaneous
  Country: US (occurrence: US)
  Receive Date: 20190107
  Receipt Date: 20190108
  Transmission Date: 20190417
  Serious: No
  Sender: FDA-Public Use
  Company Number: US-PFIZER INC-2018485058

PATIENT
  Age: 1 Year
  Sex: Male
  Weight: 12.7 kg

DRUGS (1)
  1. EUCRISA [Suspect]
     Active Substance: CRISABOROLE
     Indication: ECZEMA
     Dosage: (APPLY OINTMENT TO THE SKIN) AS NEEDED
     Route: 061
     Dates: start: 201812, end: 201812

REACTIONS (5)
  - Application site erythema [Recovering/Resolving]
  - Screaming [Unknown]
  - Product use issue [Unknown]
  - Application site irritation [Recovering/Resolving]
  - Crying [Unknown]

NARRATIVE: CASE EVENT DATE: 201812
